FAERS Safety Report 4553992-4 (Version None)
Quarter: 2005Q1

REPORT INFORMATION
  Report Type: 
  Country: None (occurrence: None)
  Receive Date: 20050118
  Receipt Date: 20050107
  Transmission Date: 20050727
  Serious: Yes (Other)
  Sender: FDA-Public Use
  Company Number: US-JNJFOC-20041105144

PATIENT
  Sex: Female

DRUGS (9)
  1. IMODIUM A-D [Suspect]
  2. IMODIUM A-D [Suspect]
  3. LISINOPRIL [Concomitant]
  4. LIPITOR [Concomitant]
  5. MULTIVITAMIN [Concomitant]
  6. HYDROCHLOROTHIAZIDE [Concomitant]
  7. GLUCOSAMINE [Concomitant]
  8. CHONDROITIN [Concomitant]
  9. UNSPECIFIED MEDICATION [Concomitant]

REACTIONS (1)
  - LOSS OF CONSCIOUSNESS [None]
